FAERS Safety Report 8009040-7 (Version None)
Quarter: 2011Q4

REPORT INFORMATION
  Report Type: 
  Country: None (occurrence: None)
  Receive Date: 20111221
  Receipt Date: 20111214
  Transmission Date: 20120403
  Serious: Yes (Hospitalization, Other)
  Sender: FDA-Public Use
  Company Number: AUR-APL-2011-06092

PATIENT
  Age: 38 Year
  Sex: Male

DRUGS (6)
  1. CEFADROXIL [Suspect]
     Indication: DYSPHAGIA
  2. CEFADROXIL [Suspect]
     Indication: ODYNOPHAGIA
  3. CEFADROXIL [Suspect]
     Indication: ASTHENIA
  4. IBUPROFEN [Suspect]
     Indication: ASTHENIA
  5. IBUPROFEN [Suspect]
     Indication: DYSPHAGIA
  6. IBUPROFEN [Suspect]
     Indication: ODYNOPHAGIA

REACTIONS (1)
  - TOXIC EPIDERMAL NECROLYSIS [None]
